FAERS Safety Report 5190980-1 (Version None)
Quarter: 2006Q4

REPORT INFORMATION
  Report Type: 
  Country: None (occurrence: None)
  Receive Date: 20061224
  Receipt Date: 20061222
  Transmission Date: 20070319
  Serious: Yes (Hospitalization)
  Sender: FDA-Public Use
  Company Number: GB-SP-2006-03610

PATIENT
  Sex: Female

DRUGS (1)
  1. IMMUCYST [Suspect]
     Route: 043

REACTIONS (4)
  - DEPRESSION [None]
  - MICTURITION URGENCY [None]
  - NAUSEA [None]
  - PAIN [None]
